FAERS Safety Report 9733301 (Version 1)
Quarter: 2013Q4

REPORT INFORMATION
  Report Type: Report from Study
  Country: HU (occurrence: HU)
  Receive Date: 20131204
  Receipt Date: 20131204
  Transmission Date: 20140711
  Serious: Yes (Death, Hospitalization)
  Sender: FDA-Public Use
  Company Number: HU-TEVA-447903ISR

PATIENT
  Age: 62 Year
  Sex: Male
  Weight: 64 kg

DRUGS (5)
  1. OXALIPLATIN [Suspect]
     Indication: COLORECTAL CANCER METASTATIC
     Route: 042
     Dates: start: 20130327, end: 20130522
  2. LEUCOVORIN CALCIUM [Suspect]
     Indication: COLORECTAL CANCER METASTATIC
     Route: 042
     Dates: start: 20130327, end: 20130522
  3. 5 FU [Suspect]
     Indication: COLORECTAL CANCER METASTATIC
     Route: 040
     Dates: start: 20130327, end: 20130522
  4. 5 FU [Suspect]
     Route: 042
     Dates: start: 20130327, end: 20130522
  5. TIVOZANIB [Suspect]
     Indication: COLORECTAL CANCER METASTATIC
     Dosage: 1.5 MILLIGRAM DAILY;
     Route: 048
     Dates: start: 20130327, end: 20130609

REACTIONS (4)
  - Ileus [Fatal]
  - Renal failure [Fatal]
  - Cardiopulmonary failure [Fatal]
  - Disease progression [Fatal]
